FAERS Safety Report 9013580 (Version 1)
Quarter: 2013Q1

REPORT INFORMATION
  Report Type: Spontaneous
  Country: US (occurrence: None)
  Receive Date: 20130107
  Receipt Date: 20130107
  Transmission Date: 20140127
  Serious: Yes (Other)
  Sender: FDA-Public Use
  Company Number: None

PATIENT
  Sex: Female
  Weight: 8.16 kg

DRUGS (1)
  1. CLOTRIMAZOLE-BETAMETHASONE [Suspect]
     Dosage: APPLY TOPICALLY TWICE PER DAY
     Route: 061
     Dates: start: 20121227, end: 20121229

REACTIONS (4)
  - Rash [None]
  - Erythema [None]
  - Pain [None]
  - Drug prescribing error [None]
